FAERS Safety Report 4467361-9 (Version None)
Quarter: 2004Q4

REPORT INFORMATION
  Report Type: 
  Country: None (occurrence: None)
  Receive Date: 20041006
  Receipt Date: 20040930
  Transmission Date: 20050328
  Serious: Yes (Death, Hospitalization, Other)
  Sender: FDA-Public Use
  Company Number: PHBS2004IN13027

PATIENT
  Age: 57 Year
  Sex: Male

DRUGS (5)
  1. CYCLOSPORINE [Suspect]
     Indication: RENAL TRANSPLANT
     Route: 065
  2. AZATHIOPRINE [Suspect]
     Indication: RENAL TRANSPLANT
     Route: 065
  3. MYCOPHENOLATE MOFETIL [Suspect]
     Indication: RENAL TRANSPLANT
     Route: 065
  4. MYCOPHENOLATE MOFETIL [Suspect]
     Dosage: 1 G/DAY
     Route: 065
  5. METHYLPREDNISOLONE [Concomitant]
     Indication: KIDNEY TRANSPLANT REJECTION
     Dosage: 3 DOSES

REACTIONS (22)
  - ANOREXIA [None]
  - ASTHENIA [None]
  - BLOOD CREATININE INCREASED [None]
  - EYE SWELLING [None]
  - FUNGAL PERITONITIS [None]
  - HEADACHE [None]
  - INTESTINAL STOMA [None]
  - INTRACRANIAL ANEURYSM [None]
  - KIDNEY TRANSPLANT REJECTION [None]
  - LAPAROTOMY [None]
  - LARGE INTESTINE PERFORATION [None]
  - MUCORMYCOSIS [None]
  - MULTI-ORGAN DISORDER [None]
  - NECROSIS [None]
  - NEPHROPATHY TOXIC [None]
  - PNEUMOPERITONEUM [None]
  - SEPSIS [None]
  - SINUS DISORDER [None]
  - SINUS OPERATION [None]
  - THROMBOSIS [None]
  - VIITH NERVE PARALYSIS [None]
  - VITH NERVE PARALYSIS [None]
